FAERS Safety Report 12837554 (Version 1)
Quarter: 2016Q4

REPORT INFORMATION
  Report Type: Spontaneous
  Country: US (occurrence: US)
  Receive Date: 20161012
  Receipt Date: 20161012
  Transmission Date: 20170207
  Serious: Yes (Hospitalization, Other)
  Sender: FDA-Public Use
  Company Number: US-JAZZ-2016-US-019489

PATIENT
  Age: 17 Year
  Sex: Male

DRUGS (1)
  1. XYREM [Suspect]
     Active Substance: SODIUM OXYBATE
     Indication: PRODUCT USED FOR UNKNOWN INDICATION
     Route: 048

REACTIONS (10)
  - Oliguria [Recovered/Resolved]
  - Tachycardia [Recovered/Resolved]
  - Lethargy [Recovered/Resolved]
  - Anuria [Recovered/Resolved]
  - Hyperventilation [Recovered/Resolved]
  - Somnolence [Recovered/Resolved]
  - Chromaturia [Recovered/Resolved]
  - Liver function test abnormal [Recovered/Resolved]
  - Tachypnoea [Recovered/Resolved]
  - Drug abuse [Unknown]
